FAERS Safety Report 10441018 (Version 1)
Quarter: 2014Q3

REPORT INFORMATION
  Report Type: Spontaneous
  Country: US (occurrence: None)
  Receive Date: 20140908
  Receipt Date: 20140908
  Transmission Date: 20150326
  Serious: No
  Sender: FDA-Public Use
  Company Number: None

PATIENT
  Age: 47 Year
  Sex: Male
  Weight: 88.45 kg

DRUGS (1)
  1. LEVAQUIN [Suspect]
     Active Substance: LEVOFLOXACIN
     Indication: SINUSITIS
     Dosage: 1 PILL ONCE DAILY TAKEN BY MOUTH
     Route: 048
     Dates: start: 20140906, end: 20140906

REACTIONS (5)
  - Neuralgia [None]
  - Back pain [None]
  - Pain in extremity [None]
  - Tinnitus [None]
  - Musculoskeletal pain [None]

NARRATIVE: CASE EVENT DATE: 20140906
